FAERS Safety Report 4756681-6 (Version None)
Quarter: 2005Q3

REPORT INFORMATION
  Report Type: 
  Country: None (occurrence: None)
  Receive Date: 20050830
  Receipt Date: 20050818
  Transmission Date: 20060218
  Serious: Yes (Death, Hospitalization)
  Sender: FDA-Public Use
  Company Number: FR-GLAXOSMITHKLINE-B0391632A

PATIENT
  Age: 85 Year
  Sex: Male

DRUGS (9)
  1. PAROXETINE HCL [Suspect]
     Indication: DRUG USE FOR UNKNOWN INDICATION
     Dosage: 20MG PER DAY
     Route: 048
     Dates: start: 20040101
  2. CORDARONE [Suspect]
     Indication: DRUG USE FOR UNKNOWN INDICATION
     Dosage: 1U SEE DOSAGE TEXT
     Route: 048
     Dates: start: 20050222, end: 20050725
  3. PRAVASTATIN [Suspect]
     Indication: HYPERCHOLESTEROLAEMIA
     Dosage: 20MG PER DAY
     Route: 048
  4. CASODEX [Suspect]
     Indication: PROSTATE CANCER METASTATIC
     Dosage: 50MG PER DAY
     Route: 048
     Dates: start: 20050316, end: 20050725
  5. NEXIUM [Suspect]
     Indication: GASTRODUODENAL ULCER
     Dosage: 40MG PER DAY
     Route: 048
     Dates: start: 20040101, end: 20050725
  6. JOSIR [Suspect]
     Indication: BENIGN PROSTATIC HYPERPLASIA
     Dosage: .4MG PER DAY
     Route: 048
     Dates: end: 20050725
  7. ADANCOR [Concomitant]
     Indication: DRUG USE FOR UNKNOWN INDICATION
     Dosage: 10MG PER DAY
     Route: 048
  8. PREVISCAN [Concomitant]
     Route: 048
     Dates: start: 20041001
  9. TARDYFERON [Concomitant]
     Route: 048
     Dates: start: 20050523

REACTIONS (11)
  - ANGIONEUROTIC OEDEMA [None]
  - BRONCHOSPASM [None]
  - CONVULSION [None]
  - CYANOSIS [None]
  - DRUG INEFFECTIVE [None]
  - DYSPNOEA [None]
  - FACE OEDEMA [None]
  - HYPOCOMPLEMENTAEMIA [None]
  - LOCALISED OEDEMA [None]
  - PARANEOPLASTIC SYNDROME [None]
  - RESPIRATORY ARREST [None]
